FAERS Safety Report 16875054 (Version 4)
Quarter: 2019Q4

REPORT INFORMATION
  Report Type: Report from Study
  Country: US (occurrence: US)
  Receive Date: 20191001
  Receipt Date: 20191031
  Transmission Date: 20200122
  Serious: Yes (Hospitalization)
  Sender: FDA-Public Use
  Company Number: US-ACTELION-A-US2019-193897

PATIENT
  Sex: Female
  Weight: 57.14 kg

DRUGS (2)
  1. OPSUMIT [Suspect]
     Active Substance: MACITENTAN
     Indication: PULMONARY ARTERIAL HYPERTENSION
     Dosage: 10 MG, QD
     Route: 048
  2. TYVASO [Suspect]
     Active Substance: TREPROSTINIL
     Indication: PRODUCT USED FOR UNKNOWN INDICATION
     Route: 065

REACTIONS (13)
  - Cough [Unknown]
  - Pulmonary arterial hypertension [Unknown]
  - Dyspnoea [Unknown]
  - Ocular discomfort [Unknown]
  - Oropharyngeal pain [Unknown]
  - Throat tightness [Unknown]
  - Fatigue [Not Recovered/Not Resolved]
  - Hospitalisation [Unknown]
  - Eye pain [Unknown]
  - Nasal congestion [Unknown]
  - Nervousness [Unknown]
  - Palpitations [Unknown]
  - Headache [Unknown]
